FAERS Safety Report 16410041 (Version 2)
Quarter: 2019Q3

REPORT INFORMATION
  Report Type: Report from Study
  Country: US (occurrence: US)
  Receive Date: 20190610
  Receipt Date: 20190708
  Transmission Date: 20191004
  Serious: Yes (Death, Hospitalization, Other)
  Sender: FDA-Public Use
  Company Number: US-GILEAD-2019-0412494

PATIENT
  Age: 61 Year
  Sex: Male

DRUGS (7)
  1. AZITHROMYCIN ANHYDROUS. [Concomitant]
     Active Substance: AZITHROMYCIN ANHYDROUS
  2. RANITIDINE. [Concomitant]
     Active Substance: RANITIDINE
  3. KALYDECO [Concomitant]
     Active Substance: IVACAFTOR
  4. PULMOZYME [Concomitant]
     Active Substance: DORNASE ALFA
  5. TOBI [Concomitant]
     Active Substance: TOBRAMYCIN
  6. AZTREONAM LYSINE [Suspect]
     Active Substance: AZTREONAM LYSINE
     Indication: CYSTIC FIBROSIS
     Dosage: 15 MG, TID
     Route: 055
     Dates: start: 20181216
  7. NOXAFIL [Suspect]
     Active Substance: POSACONAZOLE
     Indication: CYSTIC FIBROSIS
     Dosage: 300 MG, QD
     Route: 048
     Dates: start: 20190607

REACTIONS (2)
  - Lung disorder [Unknown]
  - Death [Fatal]
